FAERS Safety Report 22843901 (Version 2)
Quarter: 2025Q1

REPORT INFORMATION
  Report Type: Report from Study
  Country: CA (occurrence: CA)
  Receive Date: 20230821
  Receipt Date: 20250215
  Transmission Date: 20250409
  Serious: Yes (Other)
  Sender: SAMSUNG BIOEPIS
  Company Number: CA-SAMSUNG BIOEPIS-SB-2023-19918

PATIENT
  Sex: Male
  Weight: 110 kg

DRUGS (2)
  1. RENFLEXIS [Suspect]
     Active Substance: INFLIXIMAB-ABDA
     Indication: Uveitis
     Route: 042
     Dates: start: 20230120
  2. RENFLEXIS [Suspect]
     Active Substance: INFLIXIMAB-ABDA
     Route: 042

REACTIONS (7)
  - Haematemesis [Unknown]
  - Tooth infection [Unknown]
  - Weight decreased [Unknown]
  - Blood urine present [Unknown]
  - Joint lock [Unknown]
  - Sensation of foreign body [Unknown]
  - Off label use [Unknown]
